FAERS Safety Report 8801755 (Version 2)
Quarter: 2012Q4

REPORT INFORMATION
  Report Type: 
  Country: US (occurrence: US)
  Receive Date: 20120921
  Receipt Date: 20121105
  Transmission Date: 20130627
  Serious: No
  Sender: FDA-Public Use
  Company Number: US-PFIZER INC-2012232904

PATIENT
  Age: 69 Year
  Sex: Female
  Weight: 63.04 kg

DRUGS (3)
  1. NEURONTIN [Suspect]
     Indication: FIBROMYALGIA
     Dosage: UNK, 4x/day
     Route: 048
     Dates: start: 20120914, end: 20120919
  2. NEURONTIN [Suspect]
     Dosage: 100 mg, 3x/day
     Route: 048
     Dates: start: 20120915, end: 20121030
  3. ZOCOR [Concomitant]
     Dosage: 40 mg, 1x/day

REACTIONS (11)
  - Pain [Unknown]
  - Back pain [Unknown]
  - Muscle spasms [Unknown]
  - Musculoskeletal stiffness [Unknown]
  - Hypoaesthesia [Unknown]
  - Wrong technique in drug usage process [Unknown]
  - Oedema mouth [Unknown]
  - Erythema [Unknown]
  - Oedema peripheral [Unknown]
  - Swelling [Unknown]
  - Off label use [Unknown]
